FAERS Safety Report 15087475 (Version 1)
Quarter: 2018Q2

REPORT INFORMATION
  Report Type: Report from Study
  Country: US (occurrence: US)
  Receive Date: 20180628
  Receipt Date: 20180628
  Transmission Date: 20180711
  Serious: Yes (Hospitalization)
  Sender: FDA-Public Use
  Company Number: US-JAZZ-2018-US-007013

PATIENT
  Sex: Female

DRUGS (38)
  1. CALCIUM + VIT D [Concomitant]
     Active Substance: CALCIUM\VITAMIN D
  2. CHLORAL HYDRATE [Concomitant]
     Active Substance: CHLORAL HYDRATE
  3. XYREM [Suspect]
     Active Substance: SODIUM OXYBATE
     Dosage: DOSE ADJUSTMENT
     Route: 048
     Dates: start: 201506, end: 201801
  4. LYRICA [Concomitant]
     Active Substance: PREGABALIN
  5. TROSPIUM CHLORIDE. [Concomitant]
     Active Substance: TROSPIUM CHLORIDE
  6. QUETIAPINE FUMARATE. [Concomitant]
     Active Substance: QUETIAPINE FUMARATE
  7. MOVANTIK [Concomitant]
     Active Substance: NALOXEGOL OXALATE
  8. METHADONE HCL [Concomitant]
     Active Substance: METHADONE HYDROCHLORIDE
  9. MIDODRINE [Concomitant]
     Active Substance: MIDODRINE
  10. SENNA LAXATIVE [Concomitant]
     Active Substance: SENNOSIDES
  11. CLINDAMYCIN HYDROCHLORIDE. [Concomitant]
     Active Substance: CLINDAMYCIN HYDROCHLORIDE
  12. SULFACETAMIDE W/SULFUR [Concomitant]
  13. PROPRANOLOL [Concomitant]
     Active Substance: PROPRANOLOL HYDROCHLORIDE
  14. TIZANIDINE HCL [Concomitant]
     Active Substance: TIZANIDINE HYDROCHLORIDE
  15. XYREM [Suspect]
     Active Substance: SODIUM OXYBATE
     Indication: NARCOLEPSY
     Dosage: 4 G, BID
     Route: 048
     Dates: start: 200911, end: 200912
  16. DIFLUPREDNATE [Concomitant]
     Active Substance: DIFLUPREDNATE
  17. RELISTOR [Concomitant]
     Active Substance: METHYLNALTREXONE BROMIDE
  18. RIZATRIPTAN. [Concomitant]
     Active Substance: RIZATRIPTAN
  19. FENTORA [Concomitant]
     Active Substance: FENTANYL CITRATE
  20. ALENDRONATE SODIUM. [Concomitant]
     Active Substance: ALENDRONATE SODIUM
  21. VITAMIN D3 [Concomitant]
     Active Substance: CHOLECALCIFEROL
  22. CYMBALTA [Concomitant]
     Active Substance: DULOXETINE HYDROCHLORIDE
  23. GLICLAZIDE [Concomitant]
     Active Substance: GLICLAZIDE
  24. CLONAZEPAM. [Concomitant]
     Active Substance: CLONAZEPAM
  25. DOCUSATE SODIUM. [Concomitant]
     Active Substance: DOCUSATE SODIUM
  26. NUVIGIL [Concomitant]
     Active Substance: ARMODAFINIL
  27. DIFFERIN [Concomitant]
     Active Substance: ADAPALENE
  28. FLUOCINONIDE. [Concomitant]
     Active Substance: FLUOCINONIDE
  29. YASMIN [Concomitant]
     Active Substance: DROSPIRENONE\ETHINYL ESTRADIOL
  30. DENTA 5000 PLUS [Concomitant]
     Active Substance: SODIUM FLUORIDE
  31. METOPROLOL. [Concomitant]
     Active Substance: METOPROLOL
  32. XYREM [Suspect]
     Active Substance: SODIUM OXYBATE
     Indication: CATAPLEXY
     Dosage: 2.25 G, BID
     Route: 048
     Dates: start: 201506, end: 201506
  33. XYREM [Suspect]
     Active Substance: SODIUM OXYBATE
     Dosage: 4.5 G, BID
     Route: 048
     Dates: start: 201801
  34. BISACODYL. [Concomitant]
     Active Substance: BISACODYL
  35. MAXALT-MLT [Concomitant]
     Active Substance: RIZATRIPTAN BENZOATE
  36. CLONIDINE HCL [Concomitant]
     Active Substance: CLONIDINE HYDROCHLORIDE
  37. GABAPENTIN. [Concomitant]
     Active Substance: GABAPENTIN
  38. PYRIDIUM [Concomitant]
     Active Substance: PHENAZOPYRIDINE

REACTIONS (1)
  - Complex regional pain syndrome [Unknown]
